FAERS Safety Report 6690680-2 (Version None)
Quarter: 2010Q2

REPORT INFORMATION
  Report Type: 
  Country: None (occurrence: None)
  Receive Date: 20100421
  Receipt Date: 20091215
  Transmission Date: 20101027
  Serious: No
  Sender: FDA-Public Use
  Company Number: US-BRISTOL-MYERS SQUIBB COMPANY-14899454

PATIENT
  Age: 74 Year
  Sex: Female

DRUGS (1)
  1. HYDROXYUREA [Suspect]
     Dates: start: 20091111

REACTIONS (1)
  - OEDEMA PERIPHERAL [None]
